FAERS Safety Report 11765958 (Version 14)
Quarter: 2016Q3

REPORT INFORMATION
  Report Type: Report from Study
  Country: CA (occurrence: CA)
  Receive Date: 20151122
  Receipt Date: 20160819
  Transmission Date: 20161109
  Serious: Yes (Death, Other)
  Sender: FDA-Public Use
  Company Number: PHHY2012CA006247

PATIENT
  Age: 75 Year
  Sex: Male

DRUGS (3)
  1. OLESTYR [Concomitant]
     Indication: PRODUCT USED FOR UNKNOWN INDICATION
     Dosage: UNK UNK, QD
     Route: 065
  2. SANDOSTATIN LAR DEPOT [Suspect]
     Active Substance: OCTREOTIDE ACETATE
     Indication: CARCINOID TUMOUR
     Dosage: 30 MG, QMO (ONCE EVERY 4 WEEKS)
     Route: 030
     Dates: start: 20010307
  3. SANDOSTATIN LAR DEPOT [Suspect]
     Active Substance: OCTREOTIDE ACETATE
     Dosage: 30 MG, EVERY 2 WEEKS
     Route: 030
     Dates: end: 20160707

REACTIONS (26)
  - Erythema [Unknown]
  - Abdominal discomfort [Not Recovered/Not Resolved]
  - Urinary incontinence [Unknown]
  - Blood pressure systolic increased [Unknown]
  - Inappropriate schedule of drug administration [Unknown]
  - Death [Fatal]
  - Bowel movement irregularity [Unknown]
  - Hepatic neoplasm [Unknown]
  - Anal incontinence [Unknown]
  - Flushing [Recovering/Resolving]
  - Muscle spasms [Unknown]
  - Cold sweat [Unknown]
  - Skin induration [Unknown]
  - Proctalgia [Unknown]
  - Back pain [Unknown]
  - Dizziness [Unknown]
  - Abdominal pain [Unknown]
  - Intestinal obstruction [Unknown]
  - Blood pressure diastolic decreased [Unknown]
  - Head discomfort [Unknown]
  - Malaise [Unknown]
  - Fatigue [Unknown]
  - Weight decreased [Not Recovered/Not Resolved]
  - Diarrhoea [Not Recovered/Not Resolved]
  - Injection site pain [Unknown]
  - Nausea [Unknown]

NARRATIVE: CASE EVENT DATE: 201508
